FAERS Safety Report 6616496-0 (Version None)
Quarter: 2010Q1

REPORT INFORMATION
  Report Type: 
  Country: None (occurrence: None)
  Receive Date: 20100305
  Receipt Date: 20100223
  Transmission Date: 20100710
  Serious: Yes (Other)
  Sender: FDA-Public Use
  Company Number: AU-PFIZER INC-2010022995

PATIENT
  Sex: Male

DRUGS (1)
  1. CHAMPIX [Suspect]
     Dosage: UNK
     Dates: end: 20090801

REACTIONS (2)
  - ARTHRALGIA [None]
  - JOINT INJURY [None]
